FAERS Safety Report 5954021-8 (Version None)
Quarter: 2008Q4

REPORT INFORMATION
  Report Type: 
  Country: None (occurrence: None)
  Receive Date: 20081114
  Receipt Date: 20081104
  Transmission Date: 20090506
  Serious: Yes (Hospitalization, Other)
  Sender: FDA-Public Use
  Company Number: US-ABBOTT-08P-163-0485683-00

PATIENT
  Sex: Female
  Weight: 119.86 kg

DRUGS (22)
  1. ZEMPLAR [Suspect]
     Indication: HYPERPARATHYROIDISM
     Route: 048
     Dates: start: 20080602
  2. EPOETIN ALFA [Concomitant]
     Indication: HYPERPARATHYROIDISM
  3. POTASSIUM CHLORIDE [Concomitant]
     Indication: MINERAL SUPPLEMENTATION
  4. FUROSEMIDE [Concomitant]
     Indication: PROPHYLAXIS
     Dates: start: 20080901
  5. FUROSEMIDE [Concomitant]
     Indication: SWELLING
     Route: 048
     Dates: start: 20080901, end: 20081005
  6. FUROSEMIDE [Concomitant]
     Dosage: 80 MG IN MORNING AND 40 MG IN EVENING
     Dates: start: 20081005
  7. CLOPIDOGREL [Concomitant]
     Indication: CORONARY ARTERIAL STENT INSERTION
     Route: 048
  8. SITAGLIPTIN PHOSPHATE [Concomitant]
     Indication: DIABETES MELLITUS
     Route: 048
  9. PIOGLITAZONE [Concomitant]
     Indication: DIABETES MELLITUS
     Route: 048
  10. GLYBURIDE [Concomitant]
     Indication: DIABETES MELLITUS
     Route: 048
  11. ROSUVASTATIN [Concomitant]
     Indication: BLOOD CHOLESTEROL INCREASED
     Route: 048
  12. MELOXICAM [Concomitant]
     Indication: ARTHRITIS
     Route: 048
  13. SERETIDE [Concomitant]
     Indication: CHRONIC OBSTRUCTIVE PULMONARY DISEASE
     Route: 055
  14. COMBIVENT [Concomitant]
     Indication: DRUG USE FOR UNKNOWN INDICATION
     Route: 055
  15. SPIRIVA [Concomitant]
     Indication: CHRONIC OBSTRUCTIVE PULMONARY DISEASE
  16. LISINOPRIL [Concomitant]
     Indication: HYPERTENSION
     Route: 048
  17. METOPROLOL TARTRATE [Concomitant]
     Indication: HYPERTENSION
     Route: 048
  18. VERAPAMIL HYDROCHLORIDE [Concomitant]
     Indication: HYPERTENSION
  19. UNIFILL [Concomitant]
     Indication: HYPERTENSION
     Route: 048
  20. MULTI-VITAMIN [Concomitant]
     Indication: MEDICAL DIET
     Route: 048
  21. ACETYLSALICYLIC ACID SRT [Concomitant]
     Indication: CORONARY ARTERIAL STENT INSERTION
     Route: 048
  22. IRON [Concomitant]
     Indication: MEDICAL DIET
     Route: 048

REACTIONS (6)
  - CARTILAGE INJURY [None]
  - FALL [None]
  - HAEMORRHAGE [None]
  - OEDEMA PERIPHERAL [None]
  - SKIN LACERATION [None]
  - WOUND NECROSIS [None]
